FAERS Safety Report 9443026 (Version 1)
Quarter: 2013Q3

REPORT INFORMATION
  Report Type: Spontaneous
  Country: JP (occurrence: JP)
  Receive Date: 20130806
  Receipt Date: 20130806
  Transmission Date: 20140515
  Serious: Yes (Other)
  Sender: FDA-Public Use
  Company Number: PHHY2013JP083685

PATIENT
  Sex: Male

DRUGS (8)
  1. DIOVAN [Suspect]
     Indication: HYPERTENSION
     Dosage: 80 MG, DAILY
     Route: 048
  2. CARDENALIN [Suspect]
     Dosage: 4 MG
     Route: 048
  3. LASIX [Suspect]
     Route: 048
  4. LANDEL [Suspect]
     Dosage: 40 MG DAILY
     Route: 048
     Dates: start: 201212
  5. AZUCURENIN S [Suspect]
     Indication: GASTRIC DISORDER
     Route: 048
  6. METHYCOBAL [Suspect]
     Indication: SUPPLEMENTATION THERAPY
     Route: 048
  7. NEUQUINON [Suspect]
     Indication: CARDIAC DISORDER
     Route: 048
  8. HARNAL [Concomitant]
     Indication: BENIGN PROSTATIC HYPERPLASIA
     Route: 048

REACTIONS (3)
  - Haemorrhage subcutaneous [Unknown]
  - Erythema [Unknown]
  - Skin atrophy [Unknown]
